FAERS Safety Report 12101116 (Version 1)
Quarter: 2016Q1

REPORT INFORMATION
  Report Type: Spontaneous
  Country: DE (occurrence: DE)
  Receive Date: 20160222
  Receipt Date: 20160222
  Transmission Date: 20160526
  Serious: Yes (Other)
  Sender: FDA-Public Use
  Company Number: DE-SA-2016SA016418

PATIENT
  Sex: Male
  Weight: 118 kg

DRUGS (2)
  1. LANTUS [Suspect]
     Active Substance: INSULIN GLARGINE
     Indication: TYPE 2 DIABETES MELLITUS
     Route: 058
     Dates: start: 20160112
  2. NEBIVOLOL. [Concomitant]
     Active Substance: NEBIVOLOL
     Indication: TACHYARRHYTHMIA

REACTIONS (7)
  - Ventricular extrasystoles [Recovering/Resolving]
  - Initial insomnia [Recovering/Resolving]
  - Poor quality sleep [Recovering/Resolving]
  - Arrhythmia [Recovering/Resolving]
  - Sleep disorder [Recovering/Resolving]
  - Sinus tachycardia [Recovering/Resolving]
  - Terminal insomnia [Recovering/Resolving]

NARRATIVE: CASE EVENT DATE: 20160112
